FAERS Safety Report 8587299-5 (Version None)
Quarter: 2012Q3

REPORT INFORMATION
  Report Type: 
  Country: None (occurrence: None)
  Receive Date: 20120810
  Receipt Date: 20120216
  Transmission Date: 20120928
  Serious: No
  Sender: FDA-Public Use
  Company Number: US-ASTRAZENECA-2012SE10383

PATIENT
  Age: 47 Year
  Sex: Female

DRUGS (1)
  1. ARIMIDEX [Suspect]
     Route: 048

REACTIONS (4)
  - OROPHARYNGEAL PAIN [None]
  - PAIN OF SKIN [None]
  - EAR PAIN [None]
  - VAGINAL HAEMORRHAGE [None]
